FAERS Safety Report 5670824-1 (Version None)
Quarter: 2008Q1

REPORT INFORMATION
  Report Type: 
  Country: None (occurrence: None)
  Receive Date: 20080318
  Receipt Date: 20080310
  Transmission Date: 20080703
  Serious: Yes (Other)
  Sender: FDA-Public Use
  Company Number: US-BAYER-200816563NA

PATIENT
  Sex: Female

DRUGS (4)
  1. MAGNEVIST [Suspect]
     Indication: NUCLEAR MAGNETIC RESONANCE IMAGING
     Route: 042
     Dates: start: 20030905, end: 20030905
  2. MAGNEVIST [Suspect]
     Route: 042
     Dates: start: 20040401, end: 20040401
  3. MAGNEVIST [Suspect]
     Route: 042
     Dates: start: 20041101, end: 20041101
  4. MAGNEVIST [Suspect]
     Route: 042
     Dates: start: 20050422, end: 20050422

REACTIONS (7)
  - ANXIETY [None]
  - EMOTIONAL DISTRESS [None]
  - FIBROSIS [None]
  - INJURY [None]
  - NEPHROGENIC SYSTEMIC FIBROSIS [None]
  - PAIN [None]
  - SCAR [None]
